FAERS Safety Report 21734540 (Version 5)
Quarter: 2023Q4

REPORT INFORMATION
  Report Type: Spontaneous
  Country: US (occurrence: US)
  Receive Date: 20221215
  Receipt Date: 20231228
  Transmission Date: 20240109
  Serious: No
  Sender: FDA-Public Use
  Company Number: US-PFIZER INC-202201368936

PATIENT
  Age: 73 Year
  Sex: Female
  Weight: 103.4 kg

DRUGS (1)
  1. IBRANCE [Suspect]
     Active Substance: PALBOCICLIB
     Indication: Breast cancer
     Dosage: 125 MG, CYCLIC (DAILY 3 WEEKS ON/ 1 WEEK OFF)
     Route: 048

REACTIONS (3)
  - Renal disorder [Unknown]
  - Cough [Unknown]
  - Mental disorder [Unknown]
